FAERS Safety Report 6189835-5 (Version None)
Quarter: 2009Q2

REPORT INFORMATION
  Report Type: 
  Country: None (occurrence: None)
  Receive Date: 20090512
  Receipt Date: 20090512
  Transmission Date: 20091009
  Serious: Yes (Hospitalization)
  Sender: FDA-Public Use
  Company Number: None

PATIENT
  Age: 65 Year
  Sex: Female
  Weight: 117 kg

DRUGS (1)
  1. CEFOTETAN [Suspect]
     Indication: PERIRECTAL ABSCESS
     Dosage: 2 GRAMM X1 IV 1 DOSE
     Route: 042

REACTIONS (5)
  - ASTHENIA [None]
  - DIARRHOEA [None]
  - HAEMOLYTIC ANAEMIA [None]
  - MALAISE [None]
  - RASH [None]
